FAERS Safety Report 10403536 (Version 2)
Quarter: 2014Q3

REPORT INFORMATION
  Report Type: Spontaneous
  Country: US (occurrence: US)
  Receive Date: 20140822
  Receipt Date: 20140925
  Transmission Date: 20150326
  Serious: Yes (Other)
  Sender: FDA-Public Use
  Company Number: US-TEVA-504283USA

PATIENT
  Age: 32 Year
  Sex: Female
  Weight: 59.47 kg

DRUGS (1)
  1. PARAGARD T380A [Suspect]
     Active Substance: COPPER
     Indication: CONTRACEPTION
     Route: 015
     Dates: start: 20140808, end: 20140818

REACTIONS (7)
  - Pain [Recovered/Resolved]
  - Blood iron decreased [Recovered/Resolved]
  - Vaginal haemorrhage [Recovered/Resolved]
  - Endometrial hypertrophy [Recovered/Resolved]
  - Inflammation [Recovered/Resolved]
  - Uterine enlargement [Recovered/Resolved]
  - Dizziness [Recovered/Resolved]

NARRATIVE: CASE EVENT DATE: 20140817
